FAERS Safety Report 13321243 (Version 2)
Quarter: 2017Q1

REPORT INFORMATION
  Report Type: Spontaneous
  Country: None (occurrence: US)
  Receive Date: 20170310
  Receipt Date: 20170322
  Transmission Date: 20170428
  Serious: No
  Sender: FDA-Public Use
  Company Number: US-MORTON GROVE PHARMACEUTICALS, INC.-1064109

PATIENT
  Age: 7 Year
  Sex: Male

DRUGS (1)
  1. OXYBUTYNIN CHLORIDE SYRUP, 5MG/5L [Suspect]
     Active Substance: OXYBUTYNIN CHLORIDE
     Indication: HYPERTONIC BLADDER
     Route: 048
     Dates: start: 20170204, end: 20170205

REACTIONS (5)
  - Diarrhoea [Recovered/Resolved]
  - Liquid product physical issue [None]
  - Product taste abnormal [None]
  - Product odour abnormal [None]
  - Anal incontinence [Recovered/Resolved]

NARRATIVE: CASE EVENT DATE: 20170206
